FAERS Safety Report 25804371 (Version 1)
Quarter: 2025Q3

REPORT INFORMATION
  Report Type: Spontaneous
  Country: US (occurrence: US)
  Receive Date: 20250915
  Receipt Date: 20250915
  Transmission Date: 20251021
  Serious: Yes (Other)
  Sender: PFIZER
  Company Number: US-PFIZER INC-PV202500110316

PATIENT
  Age: 67 Year
  Sex: Female

DRUGS (8)
  1. TUCATINIB [Suspect]
     Active Substance: TUCATINIB
     Indication: Breast cancer female
     Dates: start: 202506
  2. TUCATINIB [Suspect]
     Active Substance: TUCATINIB
     Indication: Metastases to bone
  3. XELODA [Suspect]
     Active Substance: CAPECITABINE
     Indication: Breast cancer female
     Dates: start: 202506
  4. XELODA [Suspect]
     Active Substance: CAPECITABINE
     Indication: Metastases to bone
  5. HERCEPTIN [Suspect]
     Active Substance: TRASTUZUMAB
     Indication: Breast cancer female
     Dates: start: 202506
  6. HERCEPTIN [Suspect]
     Active Substance: TRASTUZUMAB
     Indication: Metastases to bone
  7. FAM-TRASTUZUMAB DERUXTECAN-NXKI [Suspect]
     Active Substance: FAM-TRASTUZUMAB DERUXTECAN-NXKI
     Indication: Breast cancer female
     Dates: start: 202308, end: 202505
  8. FAM-TRASTUZUMAB DERUXTECAN-NXKI [Suspect]
     Active Substance: FAM-TRASTUZUMAB DERUXTECAN-NXKI
     Indication: Metastases to bone

REACTIONS (3)
  - Breast cancer female [Not Recovered/Not Resolved]
  - Malignant neoplasm progression [Not Recovered/Not Resolved]
  - Metastases to bone [Not Recovered/Not Resolved]
